FAERS Safety Report 13266942 (Version 1)
Quarter: 2017Q1

REPORT INFORMATION
  Report Type: Report from Study
  Country: GB (occurrence: GB)
  Receive Date: 20170224
  Receipt Date: 20170224
  Transmission Date: 20170428
  Serious: Yes (Death, Other)
  Sender: FDA-Public Use
  Company Number: GB-ROCHE-1881051

PATIENT

DRUGS (5)
  1. CISPLATIN. [Suspect]
     Active Substance: CISPLATIN
     Indication: GASTROOESOPHAGEAL CANCER
     Dosage: DAY 1.
     Route: 042
  2. BEVACIZUMAB [Suspect]
     Active Substance: BEVACIZUMAB
     Indication: GASTROOESOPHAGEAL CANCER
     Dosage: 7.5MG/KG D1 WAS ADDED TO THE 6 CYCLES AND FOLLOWED BY 6 MAINTENANCE CYCLES OF BEVACIZUMAB ONCE IN 3
     Route: 042
  3. CAPECITABINE. [Suspect]
     Active Substance: CAPECITABINE
     Indication: GASTROOESOPHAGEAL CANCER
     Route: 065
  4. LAPATINIB [Suspect]
     Active Substance: LAPATINIB
     Indication: GASTROOESOPHAGEAL CANCER
     Dosage: DAY 1-21 IN EACH CYCLE FOR 6 MAINTENANCE DOSES.
     Route: 065
  5. EPIRUBICIN [Suspect]
     Active Substance: EPIRUBICIN
     Indication: GASTROOESOPHAGEAL CANCER
     Dosage: DAY1 .
     Route: 042

REACTIONS (9)
  - Diarrhoea [Fatal]
  - Neuropathy peripheral [Unknown]
  - Arrhythmia [Unknown]
  - Hepatotoxicity [Unknown]
  - Ejection fraction decreased [Unknown]
  - Proteinuria [Unknown]
  - Nephropathy toxic [Fatal]
  - Tinnitus [Unknown]
  - Ototoxicity [Unknown]
